FAERS Safety Report 16325227 (Version 1)
Quarter: 2019Q2

REPORT INFORMATION
  Report Type: Spontaneous
  Country: US (occurrence: US)
  Receive Date: 20190516
  Receipt Date: 20190516
  Transmission Date: 20190711
  Serious: Yes (Life-Threatening, Other)
  Sender: FDA-Public Use
  Company Number: None

PATIENT
  Age: 75 Year
  Sex: Female

DRUGS (1)
  1. COZAAR [Suspect]
     Active Substance: LOSARTAN POTASSIUM
     Route: 048
     Dates: start: 20190418, end: 20190509

REACTIONS (4)
  - Erythema [None]
  - Skin irritation [None]
  - Drug hypersensitivity [None]
  - Dermatitis [None]

NARRATIVE: CASE EVENT DATE: 20190418
